FAERS Safety Report 10626301 (Version 1)
Quarter: 2014Q4

REPORT INFORMATION
  Report Type: Spontaneous
  Country: US (occurrence: None)
  Receive Date: 20141121
  Receipt Date: 20141121
  Transmission Date: 20150529
  Serious: No
  Sender: FDA-Public Use
  Company Number: 163-10004-14092387

PATIENT
  Age: 61 Year
  Sex: Female

DRUGS (16)
  1. BETAMETHASONE (BETAMETHASONE) [Concomitant]
  2. HALOBETASOL (ULOBETASOL PROPIONATE) [Concomitant]
  3. METHOTREXATE (METHOTREXATE) [Concomitant]
     Active Substance: METHOTREXATE
  4. CALCIPOTRIENE (CALCIPROTRIOL) [Concomitant]
  5. CLINDAMYCIN [Concomitant]
     Active Substance: CLINDAMYCIN\CLINDAMYCIN PHOSPHATE
  6. TRAMADOL (TRAMADOL) [Concomitant]
     Active Substance: TRAMADOL
  7. DESONIDE (DESONIDE) [Concomitant]
  8. OTEZLA [Suspect]
     Active Substance: APREMILAST
     Indication: PSORIATIC ARTHROPATHY
     Route: 048
     Dates: start: 20140819
  9. PREDNISONE (PREDNISONE) [Concomitant]
     Active Substance: PREDNISONE
  10. NAPROXEN (NAPROXEN) [Concomitant]
     Active Substance: NAPROXEN
  11. DULOXETINE (DULOXETINE) [Concomitant]
  12. FLUTICASONE [Concomitant]
     Active Substance: FLUTICASONE\FLUTICASONE PROPIONATE
  13. MONTELUKAST [Concomitant]
     Active Substance: MONTELUKAST SODIUM
  14. PROMETHAINE (PROMETHAZINE) [Concomitant]
  15. CLOBETASOL (CLOBETASOL) [Concomitant]
     Active Substance: CLOBETASOL
  16. FOLIC ACID (FOLIC ACID) [Concomitant]
     Active Substance: FOLIC ACID

REACTIONS (1)
  - Abdominal discomfort [None]

NARRATIVE: CASE EVENT DATE: 201408
